FAERS Safety Report 20227804 (Version 4)
Quarter: 2022Q1

REPORT INFORMATION
  Report Type: Report from Study
  Country: US (occurrence: US)
  Receive Date: 20211224
  Receipt Date: 20220325
  Transmission Date: 20220424
  Serious: No
  Sender: FDA-Public Use
  Company Number: US-NOVARTISTESTPH-NVSC2021US295980

PATIENT
  Age: 72 Year
  Sex: Male

DRUGS (1)
  1. ENTRESTO [Suspect]
     Active Substance: SACUBITRIL\VALSARTAN
     Indication: Cardiac failure chronic
     Dosage: 1 DOSAGE FORM, BID (24/26MG)
     Route: 048
     Dates: start: 20211113

REACTIONS (5)
  - Oedema [Recovering/Resolving]
  - Throat clearing [Recovering/Resolving]
  - Nasopharyngitis [Recovering/Resolving]
  - Arthralgia [Not Recovered/Not Resolved]
  - Inappropriate schedule of product administration [Unknown]

NARRATIVE: CASE EVENT DATE: 20211201
